FAERS Safety Report 8564878-2 (Version None)
Quarter: 2012Q3

REPORT INFORMATION
  Report Type: 
  Country: None (occurrence: None)
  Receive Date: 20120803
  Receipt Date: 20120724
  Transmission Date: 20120928
  Serious: Yes (Hospitalization)
  Sender: FDA-Public Use
  Company Number: FR-EISAI INC-E7389-02739-CLI-FR

PATIENT
  Sex: Female

DRUGS (2)
  1. EPIRUBICIN HYDROCHLORIDE [Suspect]
     Indication: BREAST CANCER
     Route: 041
     Dates: start: 20111227, end: 20120228
  2. PREDNISOLONE [Concomitant]
     Indication: PROPHYLAXIS
     Route: 048

REACTIONS (2)
  - BRONCHOPNEUMONIA [None]
  - PAIN [None]
